FAERS Safety Report 10328463 (Version 2)
Quarter: 2014Q3

REPORT INFORMATION
  Report Type: Spontaneous
  Country: US (occurrence: US)
  Receive Date: 20140721
  Receipt Date: 20140729
  Transmission Date: 20150326
  Serious: No
  Sender: FDA-Public Use
  Company Number: US-PFIZER INC-2014199901

PATIENT
  Age: 68 Year
  Sex: Male
  Weight: 68 kg

DRUGS (3)
  1. OMEGA XL [Concomitant]
     Indication: ROUTINE HEALTH MAINTENANCE
     Dosage: UNK
  2. NARDIL [Suspect]
     Active Substance: PHENELZINE SULFATE
     Indication: DEPRESSION
     Dosage: 15 MG, 3X/DAY
     Dates: end: 201407
  3. NARDIL [Suspect]
     Active Substance: PHENELZINE SULFATE
     Indication: SKIN DISORDER

REACTIONS (2)
  - Off label use [Unknown]
  - Drug effect decreased [Unknown]
